FAERS Safety Report 7126134-9 (Version None)
Quarter: 2010Q4

REPORT INFORMATION
  Report Type: 
  Country: None (occurrence: None)
  Receive Date: 20101115
  Receipt Date: 20101030
  Transmission Date: 20110411
  Serious: Yes (Other)
  Sender: FDA-Public Use
  Company Number: 2010AP002313

PATIENT
  Age: 31 Year
  Sex: Female

DRUGS (2)
  1. CARBAMAZEPINE [Suspect]
     Indication: CONVULSION
  2. PHENOBARBITAL [Suspect]
     Indication: CONVULSION

REACTIONS (1)
  - VANISHING BILE DUCT SYNDROME [None]
